FAERS Safety Report 9264107 (Version 1)
Quarter: 2013Q2

REPORT INFORMATION
  Report Type: Spontaneous
  Country: IT (occurrence: IT)
  Receive Date: 20130430
  Receipt Date: 20130430
  Transmission Date: 20140414
  Serious: Yes (Other)
  Sender: FDA-Public Use
  Company Number: IT-JNJFOC-20130411929

PATIENT
  Age: 5 Year
  Sex: Male

DRUGS (1)
  1. IBUPROFEN (UNSPECIFIED) [Suspect]
     Indication: PYREXIA
     Route: 048
     Dates: start: 20130214, end: 20130216

REACTIONS (2)
  - Prothrombin time prolonged [Unknown]
  - Epistaxis [Recovered/Resolved]
